FAERS Safety Report 10146697 (Version 1)
Quarter: 2014Q2

REPORT INFORMATION
  Report Type: Spontaneous
  Country: US (occurrence: None)
  Receive Date: 20140430
  Receipt Date: 20140430
  Transmission Date: 20141212
  Serious: Yes (Hospitalization)
  Sender: FDA-Public Use
  Company Number: None

PATIENT
  Age: 50 Year
  Sex: Male

DRUGS (5)
  1. INSULIN [Suspect]
     Indication: HYPERGLYCAEMIA
     Route: 058
     Dates: start: 20140225, end: 20140227
  2. CEFEPIME [Concomitant]
  3. HYDROMORPHONE [Concomitant]
  4. METRONIDAZOLE [Concomitant]
  5. VANCOMYCIN [Concomitant]

REACTIONS (1)
  - Blood glucose decreased [None]
